FAERS Safety Report 7557994-5 (Version None)
Quarter: 2011Q2

REPORT INFORMATION
  Report Type: 
  Country: None (occurrence: None)
  Receive Date: 20110525
  Receipt Date: 20110131
  Transmission Date: 20111010
  Serious: No
  Sender: FDA-Public Use
  Company Number: 323203

PATIENT
  Age: 71 Year
  Sex: Female

DRUGS (3)
  1. OXYCONTIN [Concomitant]
  2. OXYCODONE HCL [Concomitant]
  3. VICTOZA [Suspect]
     Indication: TYPE 2 DIABETES MELLITUS
     Dosage: SUBCUTANEOUS
     Route: 058
     Dates: start: 20101201

REACTIONS (6)
  - FEELING JITTERY [None]
  - DYSPNOEA [None]
  - OEDEMA PERIPHERAL [None]
  - WEIGHT INCREASED [None]
  - IRRITABILITY [None]
  - HEADACHE [None]
